FAERS Safety Report 7511323-1 (Version None)
Quarter: 2011Q2

REPORT INFORMATION
  Report Type: 
  Country: None (occurrence: None)
  Receive Date: 20110531
  Receipt Date: 20110516
  Transmission Date: 20111010
  Serious: Yes (Hospitalization, Other)
  Sender: FDA-Public Use
  Company Number: US-BAYER-201036021NA

PATIENT
  Age: 28 Year
  Sex: Female
  Weight: 73 kg

DRUGS (10)
  1. YAZ [Suspect]
     Indication: PREMENSTRUAL SYNDROME
     Route: 048
     Dates: start: 20061102, end: 20080301
  2. FIORICET W/ CODEINE [Concomitant]
  3. YASMIN [Suspect]
     Indication: PREMENSTRUAL SYNDROME
     Route: 048
     Dates: start: 20061102, end: 20080301
  4. BENADRYL [Concomitant]
     Dosage: UNK UNK, PRN
  5. LEXAPRO [Concomitant]
     Indication: PREMENSTRUAL SYNDROME
     Dosage: UNK
     Dates: start: 20060101, end: 20080101
  6. CODEINE SULFATE [Concomitant]
  7. YASMIN [Suspect]
  8. PREVACID [Concomitant]
  9. ADVIL LIQUI-GELS [Concomitant]
     Indication: HEADACHE
     Dosage: 400 MG, PRN
  10. YAZ [Suspect]

REACTIONS (7)
  - DEPRESSION [None]
  - ANGINA PECTORIS [None]
  - CHEST PAIN [None]
  - PREMENSTRUAL SYNDROME [None]
  - PERICARDITIS [None]
  - CERVICAL DYSPLASIA [None]
  - HEADACHE [None]
